FAERS Safety Report 15820110 (Version 1)
Quarter: 2019Q1

REPORT INFORMATION
  Report Type: Spontaneous
  Country: FR (occurrence: FR)
  Receive Date: 20190114
  Receipt Date: 20190114
  Transmission Date: 20190417
  Serious: Yes (Death)
  Sender: FDA-Public Use
  Company Number: PHHY2019FR006371

PATIENT

DRUGS (1)
  1. PREDNISONE. [Suspect]
     Active Substance: PREDNISONE
     Indication: NEPHROTIC SYNDROME
     Dosage: UNK (SCHEDULED TO RECEIVE TREATMENT WITH LOW-DOSE PREDNISONE (0.5 MG/KG/DAY, MAXIMUM 40 MG/DAY) FOR)
     Route: 048

REACTIONS (1)
  - Septic shock [Fatal]
